FAERS Safety Report 19452048 (Version 1)
Quarter: 2021Q2

REPORT INFORMATION
  Report Type: Spontaneous
  Country: US (occurrence: US)
  Receive Date: 20210623
  Receipt Date: 20210623
  Transmission Date: 20210717
  Serious: No
  Sender: FDA-Public Use
  Company Number: US-TEVA-2021-US-1924893

PATIENT
  Sex: Male

DRUGS (1)
  1. IMATINIB TEVA [Suspect]
     Active Substance: IMATINIB
     Indication: LEUKAEMIA
     Route: 065
     Dates: start: 2016, end: 2021

REACTIONS (1)
  - Drug ineffective [Unknown]

NARRATIVE: CASE EVENT DATE: 2021
